FAERS Safety Report 11883263 (Version 3)
Quarter: 2016Q2

REPORT INFORMATION
  Report Type: Spontaneous
  Country: JP (occurrence: JP)
  Receive Date: 20151231
  Receipt Date: 20160412
  Transmission Date: 20160815
  Serious: Yes (Hospitalization, Other)
  Sender: FDA-Public Use
  Company Number: JP-GILEAD-2015-0190415

PATIENT
  Age: 83 Year
  Sex: Female
  Weight: 37 kg

DRUGS (8)
  1. SOVALDI [Suspect]
     Active Substance: SOFOSBUVIR
     Indication: HEPATIC CIRRHOSIS
     Dosage: 400 MG, UNK
     Route: 048
     Dates: start: 20151211, end: 20160307
  2. AMLODIPINE [Concomitant]
     Active Substance: AMLODIPINE BESYLATE
     Indication: HYPERTENSION
     Dosage: 2.5 MG, QD
     Route: 048
     Dates: start: 20140221
  3. ADOAIR [Concomitant]
     Active Substance: FLUTICASONE PROPIONATE\SALMETEROL XINAFOATE
     Indication: ASTHMA
     Dosage: 250 UG, UNK
     Route: 055
     Dates: start: 20151211
  4. LUPRAC [Concomitant]
     Active Substance: TORSEMIDE
     Indication: HYPERTENSION
     Dosage: 2 MG, UNK
     Route: 048
     Dates: start: 20140310
  5. COPEGUS [Suspect]
     Active Substance: RIBAVIRIN
     Indication: HEPATIC CIRRHOSIS
     Dosage: 200 MG, QD
     Route: 048
     Dates: start: 20151211, end: 20160307
  6. SINGULAIR [Concomitant]
     Active Substance: MONTELUKAST SODIUM
     Indication: ASTHMA
     Dosage: 10 MG, UNK
     Route: 048
     Dates: start: 20150731
  7. URSO [Concomitant]
     Active Substance: URSODIOL
     Indication: HEPATITIS C
     Dosage: 900 MG, UNK
     Route: 048
     Dates: start: 20140221
  8. ALDACTONE A [Concomitant]
     Active Substance: SPIRONOLACTONE
     Indication: HYPERTENSION
     Dosage: 25 MG, UNK
     Route: 048
     Dates: start: 20140221

REACTIONS (1)
  - Bronchopulmonary aspergillosis allergic [Recovering/Resolving]

NARRATIVE: CASE EVENT DATE: 20151228
